FAERS Safety Report 5733658-5 (Version None)
Quarter: 2008Q2

REPORT INFORMATION
  Report Type: 
  Country: None (occurrence: None)
  Receive Date: 20080509
  Receipt Date: 20080213
  Transmission Date: 20081010
  Serious: No
  Sender: FDA-Public Use
  Company Number: A0709396A

PATIENT

DRUGS (1)
  1. ALTABAX [Suspect]

REACTIONS (3)
  - BLISTER [None]
  - HYPERSENSITIVITY [None]
  - INFECTION [None]
